FAERS Safety Report 4335796-0 (Version None)
Quarter: 2004Q2

REPORT INFORMATION
  Report Type: 
  Country: None (occurrence: None)
  Receive Date: 20040409
  Receipt Date: 20040405
  Transmission Date: 20050107
  Serious: Yes (Life-Threatening, Hospitalization, Other)
  Sender: FDA-Public Use
  Company Number: PHRM2004FR01439

PATIENT
  Age: 76 Year
  Sex: Female
  Weight: 85 kg

DRUGS (10)
  1. TAREG [Suspect]
     Dosage: 160 MG, QD
     Route: 048
  2. KETEK [Suspect]
     Indication: BRONCHITIS
     Route: 048
     Dates: start: 20031217
  3. BRICANYL [Suspect]
     Indication: BRONCHITIS
     Dates: start: 20031217
  4. CORTICOSTEROIDS [Suspect]
  5. SECTRAL [Suspect]
     Dosage: 800 MG, DAILY
     Route: 048
  6. ZYLORIC ^GLAXO WELLCOME^ [Suspect]
     Dosage: 200 MG, QD
     Route: 048
  7. AMLODIPINE [Suspect]
     Dosage: 5 MG, QD
     Route: 048
  8. LASIX [Suspect]
     Dosage: 20 MG, QD
     Route: 048
  9. GLUCOPHAGE [Suspect]
     Dosage: 850 MG, TID
     Route: 048
  10. DIAMICRON [Suspect]
     Dosage: 80 MG, BID
     Route: 048

REACTIONS (13)
  - ACUTE RESPIRATORY DISTRESS SYNDROME [None]
  - BLOOD CREATININE INCREASED [None]
  - BLOOD UREA INCREASED [None]
  - DISTURBANCE IN ATTENTION [None]
  - ENTEROBACTER INFECTION [None]
  - HYPERKALAEMIA [None]
  - HYPOGLYCAEMIA [None]
  - MALNUTRITION [None]
  - PSEUDOMONAS INFECTION [None]
  - RENAL FAILURE ACUTE [None]
  - RESPIRATORY TRACT INFECTION [None]
  - SHOCK [None]
  - STAPHYLOCOCCAL INFECTION [None]
